FAERS Safety Report 19278394 (Version 4)
Quarter: 2022Q2

REPORT INFORMATION
  Report Type: Report from Study
  Country: CA (occurrence: CA)
  Receive Date: 20210520
  Receipt Date: 20220531
  Transmission Date: 20220720
  Serious: Yes (Other)
  Sender: FDA-Public Use
  Company Number: CA-NOVARTISPH-PHHY2018CA029841

PATIENT
  Age: 41 Year
  Sex: Female

DRUGS (15)
  1. XOLAIR [Suspect]
     Active Substance: OMALIZUMAB
     Indication: Asthma
     Dosage: 375 MG, BIW
     Route: 058
     Dates: start: 20180212
  2. MONTELUKAST SODIUM [Suspect]
     Active Substance: MONTELUKAST SODIUM
     Indication: Asthma
     Dosage: 10 MG, QD
     Route: 048
     Dates: start: 2007
  3. VENTOLIN [Concomitant]
     Active Substance: ALBUTEROL SULFATE
     Indication: Asthma
     Dosage: 2 DOSAGE FORM, PRN
     Route: 055
     Dates: start: 1987
  4. SPIRIVA [Concomitant]
     Active Substance: TIOTROPIUM BROMIDE MONOHYDRATE
     Indication: Asthma
     Dosage: 2 DOSAGE FORM, QD
     Route: 055
     Dates: start: 201703
  5. ZENHALE [Concomitant]
     Active Substance: FORMOTEROL FUMARATE\MOMETASONE FUROATE
     Indication: Asthma
     Dosage: 2 DOSAGE FORM, BID
     Route: 055
     Dates: start: 201703
  6. SINGULAIR [Concomitant]
     Active Substance: MONTELUKAST SODIUM
     Indication: Asthma
     Dosage: 1 DOSAGE FORM, QD
     Route: 048
     Dates: start: 2007
  7. REACTINE [Concomitant]
     Indication: Asthma
     Dosage: 1 DOSAGE FORM, PRN
     Route: 048
     Dates: start: 2016
  8. REACTINE [Concomitant]
     Indication: Hypersensitivity
  9. PANTOPRAZOLE SODIUM [Concomitant]
     Active Substance: PANTOPRAZOLE SODIUM
     Indication: Gastrooesophageal reflux disease
     Dosage: 1 DOSAGE FORM, QD
     Route: 048
     Dates: start: 2007
  10. FUROSEMIDE [Concomitant]
     Active Substance: FUROSEMIDE
     Indication: Oedema
     Dosage: 1 DOSAGE FORM, PRN
     Route: 048
     Dates: start: 2016
  11. LORAZEPAM [Concomitant]
     Active Substance: LORAZEPAM
     Indication: Sleep disorder
     Dosage: 1 DOSAGE FORM, PRN
     Route: 048
     Dates: start: 2007
  12. SYNTHROID [Concomitant]
     Active Substance: LEVOTHYROXINE SODIUM
     Indication: Hypothyroidism
     Dosage: 1 DOSAGE FORM, QD
     Route: 048
     Dates: start: 201704
  13. DIVALPROEX SODIUM [Concomitant]
     Active Substance: DIVALPROEX SODIUM
     Indication: Bipolar disorder
     Dosage: 1 DOSAGE FORM, BID
     Route: 048
     Dates: start: 2007
  14. ESTRACE [Concomitant]
     Active Substance: ESTRADIOL
     Indication: Hormone replacement therapy
     Dosage: 1 DOSAGE FORM, QD
     Route: 048
     Dates: start: 2009
  15. COMBIVENT RESPIMAT [Concomitant]
     Active Substance: ALBUTEROL SULFATE\IPRATROPIUM BROMIDE
     Indication: Secondary amyloidosis
     Dosage: 1 DOSAGE FORM, QD
     Route: 055
     Dates: start: 2020

REACTIONS (17)
  - Anaphylactic shock [Unknown]
  - Chest discomfort [Unknown]
  - Urticaria [Unknown]
  - Oral pain [Unknown]
  - Formication [Unknown]
  - Night sweats [Unknown]
  - Feeling hot [Recovered/Resolved]
  - Feeling cold [Not Recovered/Not Resolved]
  - Arthralgia [Unknown]
  - Pruritus [Unknown]
  - Pain [Unknown]
  - Migraine [Unknown]
  - Forced expiratory volume decreased [Unknown]
  - Weight decreased [Unknown]
  - Insomnia [Unknown]
  - Nasopharyngitis [Unknown]
  - Condition aggravated [Unknown]

NARRATIVE: CASE EVENT DATE: 20180215
